FAERS Safety Report 6008430-1 (Version None)
Quarter: 2008Q4

REPORT INFORMATION
  Report Type: 
  Country: None (occurrence: None)
  Receive Date: 20081217
  Receipt Date: 20081209
  Transmission Date: 20090506
  Serious: Yes (Hospitalization)
  Sender: FDA-Public Use
  Company Number: US-GILEAD-2008-0019407

PATIENT
  Sex: Female
  Weight: 60.382 kg

DRUGS (10)
  1. LETAIRIS [Suspect]
     Indication: PULMONARY ARTERIAL HYPERTENSION
     Route: 048
  2. LASIX [Concomitant]
  3. ALDACTONE [Concomitant]
  4. REVATIO [Concomitant]
  5. SYNTHROID [Concomitant]
  6. COUMADIN [Concomitant]
  7. LIMBREL [Concomitant]
  8. LOMOTIL [Concomitant]
  9. NEURONTIN [Concomitant]
  10. REMODULIN [Concomitant]

REACTIONS (2)
  - HEMIPARESIS [None]
  - SUBDURAL HAEMATOMA [None]
